FAERS Safety Report 5413768-2 (Version None)
Quarter: 2007Q3

REPORT INFORMATION
  Report Type: 
  Country: None (occurrence: None)
  Receive Date: 20070810
  Receipt Date: 20070806
  Transmission Date: 20080115
  Serious: Yes (Death, Hospitalization)
  Sender: FDA-Public Use
  Company Number: TKT01200700392

PATIENT
  Age: 17 Year
  Sex: Male
  Weight: 38 kg

DRUGS (1)
  1. IDURSULFASE (IDURSULFASE) (0.5 MILLIGRAM (S)/ KILOGRAM, CONCENTRATE FO [Suspect]
     Indication: MUCOPOLYSACCHARIDOSIS II
     Dosage: (21 MG, 1 IN 1 WK), INTRAVENOUS DRIP
     Route: 041
     Dates: start: 20070321, end: 20070804

REACTIONS (4)
  - CARDIAC ARREST [None]
  - CARDIAC FAILURE CONGESTIVE [None]
  - HYPOTENSION [None]
  - PULMONARY OEDEMA [None]
